FAERS Safety Report 9792882 (Version 1)
Quarter: 2014Q1

REPORT INFORMATION
  Report Type: Spontaneous
  Country: US (occurrence: US)
  Receive Date: 20140102
  Receipt Date: 20140102
  Transmission Date: 20141002
  Serious: No
  Sender: FDA-Public Use
  Company Number: US-SANOFI-AVENTIS-2013SA048148

PATIENT
  Age: 35 Year
  Sex: Female
  Weight: 131 kg

DRUGS (6)
  1. AUBAGIO [Suspect]
     Indication: MULTIPLE SCLEROSIS
     Route: 048
     Dates: start: 20130508
  2. GABAPENTIN [Concomitant]
     Indication: ARTHROPATHY
     Dates: start: 2003
  3. AMITRIPTYLINE [Concomitant]
     Indication: HEADACHE
     Dates: start: 2003
  4. CITALOPRAM [Concomitant]
     Indication: DEPRESSION
     Dates: start: 2003
  5. RISPERIDONE [Concomitant]
     Indication: SLEEP DISORDER
     Dates: start: 2012
  6. IBUPROFEN [Concomitant]
     Indication: MYALGIA
     Dates: start: 2013

REACTIONS (3)
  - Dizziness [Recovered/Resolved]
  - Nausea [Recovered/Resolved]
  - Drug dose omission [Unknown]
